FAERS Safety Report 7131559-1 (Version None)
Quarter: 2010Q4

REPORT INFORMATION
  Report Type: 
  Country: None (occurrence: None)
  Receive Date: 20101201
  Receipt Date: 20101129
  Transmission Date: 20110411
  Serious: Yes (Disabling, Other)
  Sender: FDA-Public Use
  Company Number: US-PFIZER INC-2010122215

PATIENT
  Sex: Female

DRUGS (7)
  1. CHANTIX [Suspect]
     Indication: SMOKING CESSATION THERAPY
     Dosage: 0.5 MILLIGRAMS TWICE DAILY, THEN ONE MILLIGRAM TWICE DAILY
     Dates: start: 20080730, end: 20081009
  2. CYCLOBENZAPRINE [Concomitant]
     Indication: MUSCLE SPASMS
     Dosage: UNK
     Dates: start: 20060101, end: 20090101
  3. HYDROXYZINE [Concomitant]
     Indication: ANXIETY
     Dosage: UNK
     Dates: start: 20070101, end: 20090101
  4. OFLOXACIN [Concomitant]
     Indication: EAR INFECTION
     Dosage: UNK
     Dates: start: 20070101, end: 20090101
  5. LORATADINE [Concomitant]
     Indication: HYPERSENSITIVITY
     Dosage: UNK
     Dates: start: 20070101, end: 20090101
  6. DUONEB [Concomitant]
     Indication: ASTHMA
     Dosage: UNK
     Dates: start: 20000101
  7. NAPROXEN [Concomitant]
     Indication: ANALGESIC THERAPY
     Dosage: UNK

REACTIONS (10)
  - AMNESIA [None]
  - ANXIETY [None]
  - BIPOLAR DISORDER [None]
  - DEPRESSION [None]
  - INTENTIONAL OVERDOSE [None]
  - LOSS OF CONSCIOUSNESS [None]
  - MOOD ALTERED [None]
  - NIGHTMARE [None]
  - PANIC ATTACK [None]
  - SUICIDE ATTEMPT [None]
